FAERS Safety Report 25673416 (Version 2)
Quarter: 2025Q4

REPORT INFORMATION
  Report Type: Spontaneous
  Country: US (occurrence: US)
  Receive Date: 20250813
  Receipt Date: 20251008
  Transmission Date: 20260118
  Serious: No
  Sender: ROCHE
  Company Number: US-ROCHE-10000356154

PATIENT
  Sex: Female

DRUGS (2)
  1. ACTEMRA ACTPEN [Suspect]
     Active Substance: TOCILIZUMAB
     Indication: Rheumatoid arthritis
     Route: 058
     Dates: start: 202506
  2. HUMIRA [Concomitant]
     Active Substance: ADALIMUMAB
     Dosage: 2 / BOX

REACTIONS (2)
  - Joint swelling [Unknown]
  - Arthralgia [Unknown]
